FAERS Safety Report 5250692-2 (Version None)
Quarter: 2007Q1

REPORT INFORMATION
  Report Type: 
  Country: None (occurrence: None)
  Receive Date: 20070228
  Receipt Date: 20060619
  Transmission Date: 20070707
  Serious: No
  Sender: FDA-Public Use
  Company Number: US-GLAXOSMITHKLINE-A0609579A

PATIENT
  Sex: Female

DRUGS (18)
  1. LAMICTAL [Suspect]
     Indication: BIPOLAR DISORDER
     Dosage: 50MG PER DAY
     Route: 048
  2. TRAZODONE HCL [Concomitant]
  3. DEPAKOTE [Concomitant]
  4. LIPITOR [Concomitant]
  5. ADVAIR DISKUS 100/50 [Concomitant]
  6. SPIRIVA [Concomitant]
  7. ALBUTEROL [Concomitant]
  8. SALAGEN [Concomitant]
  9. SINGULAIR [Concomitant]
  10. CELEBREX [Concomitant]
  11. HCT [Concomitant]
  12. NORVASC [Concomitant]
  13. ASPELLIN [Concomitant]
  14. NITRO-DUR [Concomitant]
  15. LEVOXYL [Concomitant]
  16. PREVACID [Concomitant]
  17. ACTONEL [Concomitant]
  18. PREDNISONE [Concomitant]

REACTIONS (2)
  - HEADACHE [None]
  - INSOMNIA [None]
